FAERS Safety Report 5659805-1 (Version None)
Quarter: 2008Q1

REPORT INFORMATION
  Report Type: 
  Country: None (occurrence: None)
  Receive Date: 20080311
  Receipt Date: 20070716
  Transmission Date: 20080703
  Serious: No
  Sender: FDA-Public Use
  Company Number: US-BAYER-200712264BCC

PATIENT
  Age: 50 Year
  Sex: Male
  Weight: 86 kg

DRUGS (4)
  1. ALEVE [Suspect]
     Indication: TOOTHACHE
     Route: 048
     Dates: start: 20070706, end: 20070707
  2. LIPITOR [Concomitant]
  3. ZETIA [Concomitant]
  4. DRIXORAL [Concomitant]

REACTIONS (1)
  - TOOTHACHE [None]
